FAERS Safety Report 14267705 (Version 2)
Quarter: 2017Q4

REPORT INFORMATION
  Report Type: Spontaneous
  Country: AU (occurrence: AU)
  Receive Date: 20171211
  Receipt Date: 20171215
  Transmission Date: 20180321
  Serious: Yes (Hospitalization, Disabling, Other)
  Sender: FDA-Public Use
  Company Number: AU-009507513-1712AUS001377

PATIENT
  Sex: Female

DRUGS (1)
  1. KEYTRUDA [Suspect]
     Active Substance: PEMBROLIZUMAB
     Indication: METASTATIC MALIGNANT MELANOMA
     Dosage: UNK
     Route: 042
     Dates: start: 2015

REACTIONS (3)
  - Metastases to lung [Unknown]
  - Brain neoplasm [Recovering/Resolving]
  - Loss of control of legs [Recovered/Resolved]

NARRATIVE: CASE EVENT DATE: 2015
